FAERS Safety Report 17307651 (Version 1)
Quarter: 2020Q1

REPORT INFORMATION
  Report Type: Report from Study
  Country: ES (occurrence: ES)
  Receive Date: 20200123
  Receipt Date: 20200123
  Transmission Date: 20200409
  Serious: Yes (Death, Other)
  Sender: FDA-Public Use
  Company Number: ES-TAKEDA-2020TUS003895

PATIENT
  Age: 56 Year
  Sex: Female
  Weight: 69 kg

DRUGS (3)
  1. BRIGATINIB [Suspect]
     Active Substance: BRIGATINIB
     Indication: NON-SMALL CELL LUNG CANCER
     Dosage: 180 MILLIGRAM, QD
     Route: 048
     Dates: start: 20181102, end: 20190409
  2. LEVETIRACETAM. [Concomitant]
     Active Substance: LEVETIRACETAM
     Indication: EPILEPSY
     Dosage: 750 MILLIGRAM, Q12H
     Route: 048
     Dates: start: 20170105, end: 20190414
  3. LORAZEPAM. [Concomitant]
     Active Substance: LORAZEPAM
     Indication: INSOMNIA
     Dosage: 1 MILLIGRAM, QD
     Route: 048
     Dates: start: 20180613, end: 20190414

REACTIONS (2)
  - Non-small cell lung cancer [Fatal]
  - Drug ineffective [Unknown]

NARRATIVE: CASE EVENT DATE: 20190414
